FAERS Safety Report 12855873 (Version 1)
Quarter: 2016Q4

REPORT INFORMATION
  Report Type: Spontaneous
  Country: HR (occurrence: None)
  Receive Date: 20161014
  Receipt Date: 20161014
  Transmission Date: 20170207
  Serious: Yes (Other)
  Sender: FDA-Public Use
  Company Number: HR2016K3432SPO

PATIENT
  Sex: Female

DRUGS (2)
  1. DIAZEPAM GENERIC (DIAZEPAM) [Suspect]
     Active Substance: DIAZEPAM
     Route: 048
     Dates: start: 20160121
  2. ENAP (ENALAPRIL) TABLET [Suspect]
     Active Substance: ENALAPRIL
     Route: 048
     Dates: start: 20160121, end: 20160121

REACTIONS (3)
  - Intentional overdose [None]
  - Blood pressure systolic decreased [None]
  - Suicide attempt [None]

NARRATIVE: CASE EVENT DATE: 20160121
